FAERS Safety Report 7313760-7 (Version None)
Quarter: 2011Q1

REPORT INFORMATION
  Report Type: 
  Country: None (occurrence: None)
  Receive Date: 20110216
  Receipt Date: 20110216
  Transmission Date: 20110831
  Serious: Yes (Hospitalization)
  Sender: FDA-Public Use
  Company Number: None

PATIENT
  Age: 10 Year
  Sex: Male
  Weight: 34.4734 kg

DRUGS (4)
  1. TENEX [Concomitant]
  2. MELATONIN [Concomitant]
  3. RISPERDAL [Concomitant]
  4. CONCERTA [Suspect]
     Dosage: 108MG DAILY PO
     Route: 048
     Dates: start: 20110101, end: 20110215

REACTIONS (5)
  - INSOMNIA [None]
  - AGGRESSION [None]
  - ABNORMAL BEHAVIOUR [None]
  - DRUG INEFFECTIVE [None]
  - IRRITABILITY [None]
